FAERS Safety Report 6884986-1 (Version None)
Quarter: 2010Q3

REPORT INFORMATION
  Report Type: 
  Country: None (occurrence: None)
  Receive Date: 20100729
  Receipt Date: 20071106
  Transmission Date: 20110219
  Serious: No
  Sender: FDA-Public Use
  Company Number: US-PFIZER INC-2007090004

PATIENT
  Sex: Male
  Weight: 80.29 kg

DRUGS (4)
  1. ACCUPRIL [Suspect]
     Indication: HYPERTENSION
     Dates: start: 20050101
  2. QUINAPRIL HCL [Suspect]
     Indication: HYPERTENSION
     Dates: start: 20071001, end: 20071001
  3. RANITIDINE [Concomitant]
  4. NIACIN [Concomitant]

REACTIONS (1)
  - DRUG INEFFECTIVE [None]
